FAERS Safety Report 12470704 (Version 1)
Quarter: 2016Q2

REPORT INFORMATION
  Report Type: Spontaneous
  Country: US (occurrence: None)
  Receive Date: 20160615
  Receipt Date: 20160615
  Transmission Date: 20160815
  Serious: No
  Sender: FDA-Public Use
  Company Number: None

PATIENT
  Age: 54 Year
  Sex: Female
  Weight: 76.2 kg

DRUGS (2)
  1. OMEPERAZOLE [Concomitant]
  2. CIPROFLOXACIN HCL 500 MG TAB, 500 MG AUROBINDO PHARMACY [Suspect]
     Active Substance: CIPROFLOXACIN HYDROCHLORIDE
     Indication: DIVERTICULITIS
     Route: 048
     Dates: start: 20160526, end: 20160605

REACTIONS (2)
  - Pruritus [None]
  - Rash generalised [None]

NARRATIVE: CASE EVENT DATE: 20160605
